FAERS Safety Report 6524952-9 (Version None)
Quarter: 2009Q4

REPORT INFORMATION
  Report Type: 
  Country: None (occurrence: None)
  Receive Date: 20091214
  Receipt Date: 20090706
  Transmission Date: 20100525
  Serious: Yes (Other)
  Sender: FDA-Public Use
  Company Number: 642173

PATIENT
  Age: 56 Year
  Sex: Male

DRUGS (6)
  1. PEG-INTERFERON A-2A (RO 25-8310)(PEG-INTERFERON ALFA 2A) [Suspect]
     Indication: HEPATITIS C
     Dosage: 180 UG 1 PER WEEK
  2. RIBAVIRIN [Suspect]
     Indication: HEPATITIS C
     Dosage: 1000 MG DAILY
     Dates: start: 20051225
  3. PEG-INTRON [Suspect]
     Indication: HEPATITIS C
     Dosage: 1.5 UG/KG 1 PER WEEK
  4. INFERGEN [Suspect]
     Indication: HEPATITIS C
     Dosage: 27 UG DAILY
     Dates: start: 20051225
  5. ERYTHROPOIETIN ALFA (EPOETIN ALFA) [Suspect]
     Indication: HAEMOGLOBIN DECREASED
  6. FILGRASTIM (FILGRASTIM) [Suspect]
     Indication: HAEMOGLOBIN DECREASED

REACTIONS (10)
  - ASTHENIA [None]
  - DEHYDRATION [None]
  - DIZZINESS [None]
  - DYSPNOEA EXERTIONAL [None]
  - FATIGUE [None]
  - HAEMOGLOBIN DECREASED [None]
  - HEPATITIS C [None]
  - INFLUENZA LIKE ILLNESS [None]
  - NEUTROPENIA [None]
  - WHITE BLOOD CELL COUNT DECREASED [None]
